FAERS Safety Report 9721036 (Version 2)
Quarter: 2013Q4

REPORT INFORMATION
  Report Type: Report from Study
  Country: US (occurrence: US)
  Receive Date: 20131129
  Receipt Date: 20131129
  Transmission Date: 20140711
  Serious: Yes (Hospitalization)
  Sender: FDA-Public Use
  Company Number: US-MERCK-1311USA006102

PATIENT
  Age: 45 Year
  Sex: Female
  Weight: 109 kg

DRUGS (6)
  1. VORINOSTAT [Suspect]
     Indication: ACUTE MYELOID LEUKAEMIA
     Dosage: 500 MG (3*/DAY) PO ON DAYS 1-3
     Route: 048
     Dates: start: 20130717, end: 20130719
  2. VORINOSTAT [Suspect]
     Dosage: 500 MG (3*/DAY) PO ON DAYS 1-3 (DAILY DOSE 1500 MG)
     Route: 048
     Dates: start: 20131029, end: 20131101
  3. IDARUBICIN [Suspect]
     Indication: ACUTE MYELOID LEUKAEMIA
     Dosage: 12MG/M2/DAY OVER 15 MIN ON DAYS 4-6
     Route: 042
     Dates: start: 20130720, end: 20130722
  4. IDARUBICIN [Suspect]
     Dosage: 8MG/M2/DAY OVER 15 MIN ON DAYS 4-5
     Route: 042
     Dates: start: 20131101, end: 20131102
  5. CYTARABINE [Suspect]
     Indication: ACUTE MYELOID LEUKAEMIA
     Dosage: 1500MG/M2/DAY CONTINUOUS INFUSION ON DAY 4-7
     Route: 042
     Dates: start: 20130720, end: 20130723
  6. CYTARABINE [Suspect]
     Dosage: 750MG/M2/DAY CONTINOUS INFUSION ON DAY 4-6
     Route: 042
     Dates: start: 20131101, end: 20131103

REACTIONS (2)
  - Embolism [Recovering/Resolving]
  - Dyspnoea [Recovering/Resolving]
